FAERS Safety Report 19140684 (Version 1)
Quarter: 2021Q2

REPORT INFORMATION
  Report Type: Report from Study
  Country: GB (occurrence: GB)
  Receive Date: 20210415
  Receipt Date: 20210415
  Transmission Date: 20210717
  Serious: Yes (Other)
  Sender: FDA-Public Use
  Company Number: NVSC2021GB048850

PATIENT
  Sex: Male

DRUGS (3)
  1. METHOTREXATE. [Suspect]
     Active Substance: METHOTREXATE
     Indication: PRODUCT USED FOR UNKNOWN INDICATION
     Dosage: UNK
     Route: 065
  2. HYRIMOZ [Suspect]
     Active Substance: ADALIMUMAB-ADAZ
     Indication: CROHN^S DISEASE
     Dosage: 40 MG, Q2W
     Route: 058
     Dates: start: 20190809
  3. HYRIMOZ [Suspect]
     Active Substance: ADALIMUMAB-ADAZ
     Indication: ANKYLOSING SPONDYLITIS
     Dosage: 40 MG/0.8ML, EOW
     Route: 058
     Dates: start: 20190809

REACTIONS (10)
  - Weight decreased [Unknown]
  - Tremor [Unknown]
  - Chest pain [Unknown]
  - Dyspnoea [Unknown]
  - Burning sensation [Unknown]
  - Dizziness [Unknown]
  - Liver disorder [Unknown]
  - Musculoskeletal chest pain [Unknown]
  - Malaise [Unknown]
  - Haematemesis [Unknown]
